FAERS Safety Report 10697984 (Version 1)
Quarter: 2015Q1

REPORT INFORMATION
  Report Type: Spontaneous
  Country: US (occurrence: None)
  Receive Date: 20150106
  Receipt Date: 20150106
  Transmission Date: 20150721
  Serious: Yes (Other)
  Sender: FDA-Public Use
  Company Number: 2014-0002S

PATIENT
  Age: 77 Year
  Sex: Male

DRUGS (4)
  1. FUROSEMIDE. [Concomitant]
     Active Substance: FUROSEMIDE
  2. POTASSIUM CHLORIDE. [Concomitant]
     Active Substance: POTASSIUM CHLORIDE
  3. ASPRIN [Concomitant]
     Active Substance: ASPIRIN
  4. LEVETIRACETAM. [Suspect]
     Active Substance: LEVETIRACETAM
     Indication: SEIZURE
     Dosage: 500 MG/TWICE DAILY/INTRAVENOUS
     Route: 042

REACTIONS (7)
  - Delirium [None]
  - Agitation [None]
  - Consciousness fluctuating [None]
  - Aggression [None]
  - Lethargy [None]
  - Speech disorder [None]
  - Disorientation [None]
